FAERS Safety Report 18329822 (Version 1)
Quarter: 2020Q3

REPORT INFORMATION
  Report Type: Spontaneous
  Country: US (occurrence: US)
  Receive Date: 20200930
  Receipt Date: 20200930
  Transmission Date: 20201103
  Serious: Yes (Hospitalization)
  Sender: FDA-Public Use
  Company Number: None

PATIENT
  Age: 40 Year
  Sex: Male
  Weight: 107.8 kg

DRUGS (1)
  1. TYSABRI [Suspect]
     Active Substance: NATALIZUMAB
     Indication: MULTIPLE SCLEROSIS
     Dosage: ?  OTHER FREQUENCY:EVERY 4 TO 6 WEEKS;?
     Route: 042
     Dates: start: 20200817

REACTIONS (8)
  - Throat irritation [None]
  - Infusion site pruritus [None]
  - Panic reaction [None]
  - Hypoaesthesia [None]
  - Urticaria [None]
  - Anxiety [None]
  - Paraesthesia [None]
  - Chest pain [None]

NARRATIVE: CASE EVENT DATE: 20200928
